FAERS Safety Report 7717888-9 (Version None)
Quarter: 2011Q3

REPORT INFORMATION
  Report Type: 
  Country: None (occurrence: None)
  Receive Date: 20110824
  Receipt Date: 20110815
  Transmission Date: 20111222
  Serious: Yes (Other)
  Sender: FDA-Public Use
  Company Number: B0741227A

PATIENT
  Age: 7 Year
  Sex: Male

DRUGS (7)
  1. METRONIDAZOLE [Suspect]
     Indication: CLOSTRIDIAL INFECTION
     Dosage: 250 MG /THREE TIMES PER DAY / ORAL
     Route: 048
  2. CLOFARABINE [Concomitant]
  3. LORAZEPAM [Concomitant]
  4. TACROLIMUS [Concomitant]
  5. MYCOPHENOLATE MOFETIL [Concomitant]
  6. MYLERAN [Suspect]
     Indication: STEM CELL TRANSPLANT
     Dosage: INTRAVENOUS
     Route: 042
  7. RABBIT ANTITHYMOCYTE SERU [Concomitant]

REACTIONS (4)
  - DRUG HALF-LIFE INCREASED [None]
  - ALANINE AMINOTRANSFERASE INCREASED [None]
  - DRUG CLEARANCE DECREASED [None]
  - DRUG INTERACTION [None]
